FAERS Safety Report 9323188 (Version 3)
Quarter: 2013Q3

REPORT INFORMATION
  Report Type: Spontaneous
  Country: US (occurrence: US)
  Receive Date: 20130603
  Receipt Date: 20130808
  Transmission Date: 20140515
  Serious: Yes (Other)
  Sender: FDA-Public Use
  Company Number: US-PFIZER INC-2013167250

PATIENT
  Age: 53 Year
  Sex: Male
  Weight: 83.9 kg

DRUGS (2)
  1. ADVIL [Suspect]
     Indication: MYALGIA
     Dosage: UNK, AS NEEDED
     Route: 048
     Dates: start: 2001
  2. ADVIL [Suspect]
     Indication: HEADACHE

REACTIONS (4)
  - Abscess intestinal [Unknown]
  - Intestinal ulcer [Unknown]
  - Occult blood positive [Unknown]
  - Inflammation [Unknown]
